FAERS Safety Report 4851685-7 (Version None)
Quarter: 2005Q4

REPORT INFORMATION
  Report Type: 
  Country: None (occurrence: None)
  Receive Date: 20051209
  Receipt Date: 20051209
  Transmission Date: 20060501
  Serious: Yes (Other)
  Sender: FDA-Public Use
  Company Number: None

PATIENT
  Sex: Male
  Weight: 17.2367 kg

DRUGS (1)
  1. ELIDEL [Suspect]
     Indication: ECZEMA
     Dosage: OVER BODY TWICE A WEEK TOP
     Route: 061
     Dates: start: 20021115, end: 20040125

REACTIONS (2)
  - ALOPECIA AREATA [None]
  - IMMUNE SYSTEM DISORDER [None]
